FAERS Safety Report 12091043 (Version 2)
Quarter: 2016Q1

REPORT INFORMATION
  Report Type: Spontaneous
  Country: US (occurrence: US)
  Receive Date: 20160218
  Receipt Date: 20160307
  Transmission Date: 20160526
  Serious: Yes (Other)
  Sender: FDA-Public Use
  Company Number: US-PFIZER INC-2016082419

PATIENT
  Age: 64 Year
  Sex: Female
  Weight: 59 kg

DRUGS (2)
  1. LEVOTHYROXINE SODIUM. [Suspect]
     Active Substance: LEVOTHYROXINE SODIUM
     Indication: THYROID DISORDER
     Dosage: 0.075 MG, 1X/DAY
     Dates: start: 1999
  2. LEVOTHYROXINE SODIUM. [Suspect]
     Active Substance: LEVOTHYROXINE SODIUM
     Dosage: 0.075 MG, 1X/DAY
     Dates: start: 2009

REACTIONS (1)
  - Cerebral disorder [Unknown]

NARRATIVE: CASE EVENT DATE: 2000
